FAERS Safety Report 6672828-9 (Version None)
Quarter: 2010Q2

REPORT INFORMATION
  Report Type: 
  Country: None (occurrence: None)
  Receive Date: 20100408
  Receipt Date: 20100324
  Transmission Date: 20101027
  Serious: Yes (Other)
  Sender: FDA-Public Use
  Company Number: PHEH2010US03397

PATIENT
  Sex: Female

DRUGS (4)
  1. ZOMETA [Suspect]
     Dosage: UNK
     Dates: start: 20050722
  2. AREDIA [Suspect]
     Indication: MULTIPLE MYELOMA
     Dosage: 30 MG, UNK
     Dates: start: 20011101, end: 20030701
  3. AREDIA [Suspect]
     Dosage: 90 MG, QMO
     Dates: start: 20011116, end: 20030401
  4. AREDIA [Suspect]
     Dosage: 90 MG, QMO
     Dates: start: 20030601, end: 20040501

REACTIONS (21)
  - BASEDOW'S DISEASE [None]
  - BONE SCAN ABNORMAL [None]
  - DIPLOPIA [None]
  - EXOPHTHALMOS [None]
  - FISTULA [None]
  - GINGIVAL EROSION [None]
  - GINGIVAL SWELLING [None]
  - HYPERGLYCAEMIA [None]
  - MASTOCYTOSIS [None]
  - METASTASIS [None]
  - NASAL SEPTUM DEVIATION [None]
  - ORAL DISORDER [None]
  - ORAL PAIN [None]
  - OSTEOARTHRITIS [None]
  - OSTEOPENIA [None]
  - OSTEOPOROSIS [None]
  - PALATAL OEDEMA [None]
  - SCOLIOSIS [None]
  - SINUSITIS [None]
  - SWELLING [None]
  - WEIGHT DECREASED [None]
